FAERS Safety Report 23151177 (Version 3)
Quarter: 2023Q4

REPORT INFORMATION
  Report Type: Report from Study
  Country: IL (occurrence: IL)
  Receive Date: 20231106
  Receipt Date: 20231220
  Transmission Date: 20240110
  Serious: Yes (Hospitalization)
  Sender: FDA-Public Use
  Company Number: IL-ABBVIE-5483131

PATIENT
  Age: 75 Year
  Sex: Male

DRUGS (3)
  1. CARBIDOPA\LEVODOPA [Suspect]
     Active Substance: CARBIDOPA\LEVODOPA
     Indication: Parkinson^s disease
     Dosage: MORNING DOSE 3.0ML, CONTINUOUS DOSE 3.5ML/HOUR, EXTRA DOSE 1.5ML,?START DATE TEXT: UNKNOWN
     Route: 050
  2. CARBIDOPA\LEVODOPA [Suspect]
     Active Substance: CARBIDOPA\LEVODOPA
     Dosage: MORNING DOSE 6.0ML, CONTINUOUS DOSE 3.0ML/HOUR, EXTRA DOSE 1.5ML,?START DATE TEXT: UNKNOWN,?STOP ...
     Route: 050
  3. CARBIDOPA\LEVODOPA [Suspect]
     Active Substance: CARBIDOPA\LEVODOPA
     Dosage: STOP DATE TEXT: UNKNOWN
     Route: 050
     Dates: start: 20170305

REACTIONS (8)
  - Pemphigus [Recovering/Resolving]
  - Device issue [Recovered/Resolved]
  - Device occlusion [Recovered/Resolved]
  - Incorrect route of product administration [Not Recovered/Not Resolved]
  - Coronavirus infection [Unknown]
  - Device occlusion [Unknown]
  - On and off phenomenon [Unknown]
  - Speech disorder [Unknown]

NARRATIVE: CASE EVENT DATE: 20231026
